FAERS Safety Report 8089209-6 (Version None)
Quarter: 2012Q1

REPORT INFORMATION
  Report Type: 
  Country: None (occurrence: None)
  Receive Date: 20120128
  Receipt Date: 20110617
  Transmission Date: 20120608
  Serious: No
  Sender: FDA-Public Use
  Company Number: US-ABBOTT-11P-163-0733007-00

PATIENT
  Sex: Male
  Weight: 77.18 kg

DRUGS (3)
  1. PREDNISONE TAB [Concomitant]
     Indication: CROHN'S DISEASE
  2. ENTOCORT EC [Concomitant]
     Indication: CROHN'S DISEASE
     Dates: start: 20110101
  3. HUMIRA [Suspect]
     Indication: CROHN'S DISEASE
     Route: 058
     Dates: start: 20110228

REACTIONS (7)
  - MUSCLE SPASMS [None]
  - MUSCLE TWITCHING [None]
  - PHARYNGITIS STREPTOCOCCAL [None]
  - WHITE BLOOD CELL COUNT INCREASED [None]
  - HAEMORRHAGE [None]
  - OROPHARYNGEAL PAIN [None]
  - INCREASED TENDENCY TO BRUISE [None]
